FAERS Safety Report 7337270-6 (Version None)
Quarter: 2011Q1

REPORT INFORMATION
  Report Type: 
  Country: None (occurrence: None)
  Receive Date: 20110308
  Receipt Date: 20110302
  Transmission Date: 20110831
  Serious: Yes (Death, Life-Threatening)
  Sender: FDA-Public Use
  Company Number: GR-ASTELLAS-2011EU000594

PATIENT
  Sex: Female
  Weight: 80 kg

DRUGS (6)
  1. TAZOCIN [Concomitant]
     Indication: ANTIBIOTIC PROPHYLAXIS
     Dosage: 4.5 G, QID
     Route: 042
     Dates: start: 20110125, end: 20110201
  2. CIPROFLOXACIN [Concomitant]
     Indication: ANTIBIOTIC PROPHYLAXIS
     Dosage: 450 MG, QID
     Route: 042
     Dates: start: 20110125, end: 20110201
  3. PRIMPERAN TAB [Concomitant]
     Indication: PROPHYLAXIS
     Dosage: 10 MG, TID
     Route: 042
     Dates: start: 20110125, end: 20110201
  4. BLINDED MICAFUNGIN INJECTION [Suspect]
     Indication: ANTIFUNGAL TREATMENT
     Dosage: 10 MG, UID/QD
     Route: 042
     Dates: start: 20110126, end: 20110201
  5. ZYVOX [Concomitant]
     Indication: ANTIBIOTIC PROPHYLAXIS
     Dosage: 600 MG, BID
     Route: 042
     Dates: start: 20110125, end: 20110201
  6. BEROVENT [Concomitant]
     Indication: DYSPNOEA
     Dosage: 2 MG, QID
     Route: 050
     Dates: start: 20110127, end: 20110201

REACTIONS (2)
  - ABDOMINAL SEPSIS [None]
  - MULTI-ORGAN FAILURE [None]
